FAERS Safety Report 24910815 (Version 1)
Quarter: 2025Q1

REPORT INFORMATION
  Report Type: Spontaneous
  Country: US (occurrence: None)
  Receive Date: 20250130
  Receipt Date: 20250130
  Transmission Date: 20250408
  Serious: Yes (Other)
  Sender: FDA-CTU
  Company Number: None

PATIENT
  Age: 57 Year
  Sex: Female
  Weight: 155.25 kg

DRUGS (4)
  1. SINGULAIR [Suspect]
     Active Substance: MONTELUKAST SODIUM
     Indication: Asthma
     Route: 048
     Dates: start: 20120912, end: 20250130
  2. BISOPROLOL [Concomitant]
     Active Substance: BISOPROLOL
  3. QUERCETAIN [Concomitant]
  4. MAGNESIUM [Concomitant]
     Active Substance: MAGNESIUM

REACTIONS (12)
  - Hallucination, auditory [None]
  - Hallucination, visual [None]
  - Depression [None]
  - Memory impairment [None]
  - Suicidal ideation [None]
  - Migraine [None]
  - Insomnia [None]
  - Anxiety [None]
  - Therapy cessation [None]
  - Haematocrit increased [None]
  - White blood cell count increased [None]
  - Red blood cell count increased [None]

NARRATIVE: CASE EVENT DATE: 20241214
